FAERS Safety Report 24879958 (Version 1)
Quarter: 2025Q1

REPORT INFORMATION
  Report Type: Report from Study
  Country: US (occurrence: US)
  Receive Date: 20250123
  Receipt Date: 20250123
  Transmission Date: 20250409
  Serious: No
  Sender: ASTELLAS
  Company Number: US-ASTELLAS-2025-AER-003479

PATIENT

DRUGS (6)
  1. FEZOLINETANT [Suspect]
     Active Substance: FEZOLINETANT
     Indication: Hot flush
     Route: 065
  2. KADCYLA [Concomitant]
     Active Substance: ADO-TRASTUZUMAB EMTANSINE
     Indication: Product used for unknown indication
     Route: 065
  3. TCHP [Concomitant]
     Indication: Product used for unknown indication
     Route: 065
  4. ADVIL [Concomitant]
     Active Substance: IBUPROFEN
     Indication: Product used for unknown indication
     Route: 065
  5. ARIMIDEX [Concomitant]
     Active Substance: ANASTROZOLE
     Indication: Product used for unknown indication
     Route: 065
  6. GOSERELIN [Concomitant]
     Active Substance: GOSERELIN
     Indication: Product used for unknown indication
     Route: 065

REACTIONS (3)
  - Headache [Unknown]
  - Presyncope [Unknown]
  - Drug ineffective [Unknown]
